FAERS Safety Report 5412010-6 (Version None)
Quarter: 2007Q3

REPORT INFORMATION
  Report Type: 
  Country: None (occurrence: None)
  Receive Date: 20070813
  Receipt Date: 20070802
  Transmission Date: 20080115
  Serious: No
  Sender: FDA-Public Use
  Company Number: AU-JNJFOC-20070704381

PATIENT
  Age: 40 Year
  Sex: Female

DRUGS (4)
  1. DURAGESIC-100 [Suspect]
     Indication: PAIN
     Route: 062
  2. ST JOHNS WORT [Interacting]
     Indication: DRUG USE FOR UNKNOWN INDICATION
     Route: 065
  3. RABEPRAZOLE SODIUM [Concomitant]
     Route: 065
  4. PANADOL [Concomitant]
     Route: 065

REACTIONS (2)
  - DRUG INTERACTION [None]
  - NAUSEA [None]
